FAERS Safety Report 9767517 (Version 1)
Quarter: 2013Q4

REPORT INFORMATION
  Report Type: Spontaneous
  Country: DE (occurrence: DE)
  Receive Date: 20131217
  Receipt Date: 20131217
  Transmission Date: 20140711
  Serious: Yes (Death)
  Sender: FDA-Public Use
  Company Number: PHHY2013DE147327

PATIENT
  Age: 70 Year
  Sex: Female

DRUGS (7)
  1. GLIVEC [Suspect]
     Indication: CHRONIC MYELOID LEUKAEMIA (IN REMISSION)
     Dosage: UNK UKN, UNK
     Route: 048
     Dates: start: 2005, end: 201207
  2. GLIVEC [Suspect]
     Dosage: UNK UKN, UNK
     Route: 048
     Dates: start: 20130718
  3. SIMVASTATIN [Concomitant]
     Dosage: 1 MG, DAILY
     Dates: start: 20130708
  4. METOHEXAL [Concomitant]
     Dosage: 1 MG, DAILY
     Dates: start: 20130708
  5. HYDROCHLOROTHIAZIDE [Concomitant]
     Dosage: 1 MG, DAILY
     Dates: start: 20130708
  6. RAMIPRIL [Concomitant]
     Dosage: 1 MG, DAILY
  7. BRILIQUE [Concomitant]
     Dosage: 2 MG, DAILY
     Dates: start: 20130708

REACTIONS (1)
  - Road traffic accident [Fatal]
